FAERS Safety Report 6194277-2 (Version None)
Quarter: 2009Q2

REPORT INFORMATION
  Report Type: 
  Country: None (occurrence: None)
  Receive Date: 20090519
  Receipt Date: 20080516
  Transmission Date: 20091009
  Serious: Yes (Hospitalization)
  Sender: FDA-Public Use
  Company Number: US-ASTRAZENECA-2007UW18765

PATIENT
  Age: 19349 Day
  Sex: Female

DRUGS (22)
  1. SEROQUEL [Suspect]
     Indication: SLEEP DISORDER
     Route: 048
     Dates: start: 20050725, end: 20060225
  2. SEROQUEL [Suspect]
     Indication: NERVE INJURY
     Route: 048
     Dates: start: 20050725, end: 20060225
  3. RISPERDAL [Concomitant]
  4. ZYPREXA [Concomitant]
  5. NITROGLYCERIN [Concomitant]
     Route: 065
  6. ACETAMINOPHEN [Concomitant]
     Route: 065
  7. METFORMIN HCL [Concomitant]
     Route: 065
  8. LISINOPRIL [Concomitant]
     Dosage: 5-20MG
     Route: 065
  9. SPIRONOLACTONE [Concomitant]
     Route: 065
  10. METOPROLOL [Concomitant]
     Route: 065
  11. HEPARIN [Concomitant]
     Route: 065
  12. RANITIDINE [Concomitant]
     Route: 065
  13. PROMETHAZINE [Concomitant]
     Route: 065
  14. KETOROLAC [Concomitant]
     Route: 065
  15. HYDROMORPHONE HCL [Concomitant]
     Route: 065
  16. VICODIN [Concomitant]
     Route: 065
  17. TRAZODONE HCL [Concomitant]
     Route: 065
  18. METOCLOPRAMIDE [Concomitant]
     Route: 065
  19. ALLOPURINOL [Concomitant]
     Route: 065
  20. MAXZIDE-25 [Concomitant]
     Route: 065
  21. GLIMEPIRIDE [Concomitant]
     Route: 065
  22. TOPIRAMATE [Concomitant]
     Route: 065

REACTIONS (2)
  - DIABETES MELLITUS [None]
  - MENINGITIS [None]
